FAERS Safety Report 4907087-8 (Version None)
Quarter: 2006Q1

REPORT INFORMATION
  Report Type: 
  Country: None (occurrence: None)
  Receive Date: 20060206
  Receipt Date: 20060123
  Transmission Date: 20060701
  Serious: Yes (Death, Other)
  Sender: FDA-Public Use
  Company Number: 2006014241

PATIENT
  Age: 75 Year
  Sex: Male

DRUGS (8)
  1. DALTEPARIN (DALTEPARIN) [Suspect]
     Indication: ILL-DEFINED DISORDER
     Dosage: (2 IN 1 D), SUBCUTANEOUS
     Route: 058
  2. FUROSEMIDE [Concomitant]
  3. DILTIAZEM [Concomitant]
  4. AMIODARONE HCL [Concomitant]
  5. SIMVASTATIN [Concomitant]
  6. GLYCERYL TRINITRATE (GLYCERYL TRINITRATE) [Concomitant]
  7. THYROXIN (LEVOTHYROXINE SODIUM) [Concomitant]
  8. ASPIRIN [Concomitant]

REACTIONS (5)
  - BLOOD BLISTER [None]
  - CEREBRAL HAEMORRHAGE [None]
  - CORONARY ARTERY DISEASE [None]
  - DERMATITIS BULLOUS [None]
  - OVERDOSE [None]
